FAERS Safety Report 15782668 (Version 1)
Quarter: 2019Q1

REPORT INFORMATION
  Report Type: Spontaneous
  Country: CN (occurrence: CN)
  Receive Date: 20190102
  Receipt Date: 20190102
  Transmission Date: 20190417
  Serious: Yes (Life-Threatening, Hospitalization)
  Sender: FDA-Public Use
  Company Number: CN-BAYER-2018-245996

PATIENT
  Age: 85 Year
  Sex: Female
  Weight: 45 kg

DRUGS (3)
  1. BAYASPIRIN 100 MG [Suspect]
     Active Substance: ASPIRIN
     Indication: CEREBRAL INFARCTION
     Dosage: 100 MG, QD
     Route: 048
     Dates: start: 20181027, end: 20181107
  2. CLOPIDOGREL SULFATE [Suspect]
     Active Substance: CLOPIDOGREL BISULFATE
     Indication: CEREBRAL INFARCTION
     Dosage: 50 MG, QD
     Route: 048
     Dates: start: 20181030, end: 20181107
  3. DALTEPARIN SODIUM [Suspect]
     Active Substance: DALTEPARIN SODIUM
     Indication: THROMBOSIS
     Dosage: 0.2 ML, QD
     Route: 058
     Dates: start: 20181027, end: 20181107

REACTIONS (5)
  - Pupillary reflex impaired [Recovering/Resolving]
  - Confusional state [Recovering/Resolving]
  - Gastrointestinal haemorrhage [Recovering/Resolving]
  - Coma [Recovering/Resolving]
  - Pallor [Recovering/Resolving]

NARRATIVE: CASE EVENT DATE: 20181107
